FAERS Safety Report 9089477 (Version 1)
Quarter: 2013Q1

REPORT INFORMATION
  Report Type: Report from Study
  Country: US (occurrence: US)
  Receive Date: 20130201
  Receipt Date: 20130201
  Transmission Date: 20140127
  Serious: No
  Sender: FDA-Public Use
  Company Number: US-ABBOTT-12P-163-1019532-00

PATIENT
  Age: 36 Year
  Sex: Female

DRUGS (14)
  1. HUMIRA [Suspect]
     Indication: CROHN^S DISEASE
     Dosage: STARTER DOSE
     Route: 058
     Dates: start: 20121129
  2. ASACOL [Concomitant]
     Indication: PRODUCT USED FOR UNKNOWN INDICATION
  3. PREDNISONE [Concomitant]
     Indication: PRODUCT USED FOR UNKNOWN INDICATION
  4. PROTONIX [Concomitant]
     Indication: GASTROOESOPHAGEAL REFLUX DISEASE
  5. NEURONTIN [Concomitant]
     Indication: BACK DISORDER
  6. TRAMADOL [Concomitant]
     Indication: PAIN
  7. FOSAMAX [Concomitant]
     Indication: OSTEOPOROSIS
     Dosage: WEEKLY
  8. CELEXA [Concomitant]
     Indication: ANXIETY
  9. CELEXA [Concomitant]
     Indication: DEPRESSION
  10. CALCIUM [Concomitant]
     Indication: PRODUCT USED FOR UNKNOWN INDICATION
  11. VITAMIN D [Concomitant]
     Indication: PRODUCT USED FOR UNKNOWN INDICATION
  12. VITAMIN B12 [Concomitant]
     Indication: PRODUCT USED FOR UNKNOWN INDICATION
  13. VITAMIN C [Concomitant]
     Indication: PRODUCT USED FOR UNKNOWN INDICATION
  14. IRON [Concomitant]
     Indication: ANAEMIA

REACTIONS (1)
  - Injection site pain [Recovered/Resolved]
